FAERS Safety Report 8943644 (Version 1)
Quarter: 2012Q4

REPORT INFORMATION
  Report Type: 
  Country: US (occurrence: US)
  Receive Date: 20121204
  Receipt Date: 20121204
  Transmission Date: 20130627
  Serious: Yes (Hospitalization)
  Sender: FDA-Public Use
  Company Number: US-PFIZER INC-2012300400

PATIENT
  Age: 50 Year
  Sex: Female

DRUGS (1)
  1. INLYTA [Suspect]
     Indication: CARCINOMA KIDNEY
     Dosage: 10 mg, 2x/day
     Dates: start: 20120613

REACTIONS (2)
  - Pneumonia [Unknown]
  - Hepatic enzyme increased [Unknown]
